FAERS Safety Report 9455883 (Version 1)
Quarter: 2013Q3

REPORT INFORMATION
  Report Type: Spontaneous
  Country: FR (occurrence: FR)
  Receive Date: 20130813
  Receipt Date: 20130813
  Transmission Date: 20140515
  Serious: Yes (Life-Threatening, Other)
  Sender: FDA-Public Use
  Company Number: FR-009507513-1308FRA003621

PATIENT
  Age: 29 Year
  Sex: Female

DRUGS (2)
  1. ESMERON [Suspect]
     Indication: ANAESTHESIA
     Dosage: UNK
     Route: 042
     Dates: start: 20130606, end: 20130606
  2. HYPNOMIDATE [Suspect]
     Indication: ANAESTHESIA
     Dosage: UNK
     Route: 042
     Dates: start: 20130606, end: 20130606

REACTIONS (2)
  - Anaphylactic shock [Recovered/Resolved]
  - Injection site reaction [Recovered/Resolved]
